FAERS Safety Report 5988218-8 (Version None)
Quarter: 2008Q4

REPORT INFORMATION
  Report Type: 
  Country: None (occurrence: None)
  Receive Date: 20081210
  Receipt Date: 20081204
  Transmission Date: 20090506
  Serious: Yes (Disabling, Other)
  Sender: FDA-Public Use
  Company Number: BR-BAYER-200822486LA

PATIENT
  Age: 60 Year
  Sex: Female

DRUGS (4)
  1. BETAFERON [Suspect]
     Indication: MULTIPLE SCLEROSIS
     Route: 058
     Dates: start: 19990101
  2. MANTIDAN [Concomitant]
     Indication: MUSCLE TWITCHING
     Dosage: TOTAL DAILY DOSE: 100 MG  UNIT DOSE: 100 MG
     Route: 048
  3. ARADOIS [Concomitant]
     Indication: HYPERTENSION
     Dosage: TOTAL DAILY DOSE: 50 MG  UNIT DOSE: 50 MG
     Route: 048
  4. ALLEGRA [Concomitant]
     Indication: HYPERSENSITIVITY
     Route: 048

REACTIONS (5)
  - COORDINATION ABNORMAL [None]
  - FALL [None]
  - HEAD INJURY [None]
  - MOVEMENT DISORDER [None]
  - MULTIPLE SCLEROSIS [None]
